FAERS Safety Report 4410811-4 (Version None)
Quarter: 2004Q3

REPORT INFORMATION
  Report Type: 
  Country: None (occurrence: None)
  Receive Date: 20040726
  Receipt Date: 20040714
  Transmission Date: 20050211
  Serious: Yes (Hospitalization)
  Sender: FDA-Public Use
  Company Number: DSA_70342_2004

PATIENT
  Age: 61 Year
  Sex: Female
  Weight: 81.6475 kg

DRUGS (6)
  1. DARVOCET-N 100 [Suspect]
     Indication: ARTHRALGIA
     Dosage: 6 TAB QDAY
  2. FORTEO [Suspect]
     Indication: OSTEOPOROSIS
     Dates: start: 20040617
  3. NEXIUM [Concomitant]
  4. CELEBREX [Concomitant]
  5. PLAQUENIL [Concomitant]
  6. PLAVIX [Concomitant]

REACTIONS (8)
  - ABDOMINAL PAIN [None]
  - ABDOMINAL PAIN UPPER [None]
  - BACTERIAL INFECTION [None]
  - COMPUTERISED TOMOGRAM ABDOMEN ABNORMAL [None]
  - GASTRIC INFECTION [None]
  - INTESTINAL ULCER PERFORATION [None]
  - LARGE INTESTINAL ULCER [None]
  - POST PROCEDURAL HAEMORRHAGE [None]
